FAERS Safety Report 7702334 (Version 6)
Quarter: 2013Q1

REPORT INFORMATION
  Report Type: Spontaneous
  Country: US (occurrence: US)
  Receive Date: 20101209
  Receipt Date: 20130309
  Transmission Date: 20140127
  Serious: Yes (Other)
  Sender: FDA-Public Use
  Company Number: US-AMGEN-USASP2010007966

PATIENT
  Age: 64 Year
  Sex: Male

DRUGS (4)
  1. NPLATE [Suspect]
     Indication: IDIOPATHIC THROMBOCYTOPENIC PURPURA
     Dosage: UNK
     Dates: start: 2010
  2. NPLATE [Suspect]
  3. LIVER THERAPY [Concomitant]
     Indication: PLATELET COUNT
     Dosage: 30 DF, QD
  4. HERBAL EXTRACT NOS [Concomitant]
     Dosage: UNK

REACTIONS (11)
  - Erectile dysfunction [Not Recovered/Not Resolved]
  - Cardiac murmur [Unknown]
  - Platelet count decreased [Unknown]
  - Atrial fibrillation [Unknown]
  - Prostatomegaly [Unknown]
  - Drug ineffective [Unknown]
  - Gingival disorder [Unknown]
  - Tooth disorder [Not Recovered/Not Resolved]
  - Tooth infection [Unknown]
  - Platelet count increased [Recovered/Resolved]
  - Tooth extraction [Unknown]
